FAERS Safety Report 26185784 (Version 1)
Quarter: 2025Q4

REPORT INFORMATION
  Report Type: Spontaneous
  Country: US (occurrence: None)
  Receive Date: 20251220
  Receipt Date: 20251220
  Transmission Date: 20260118
  Serious: Yes (Disabling)
  Sender: FDA-CTU
  Company Number: None

PATIENT
  Age: 46 Year
  Sex: Female
  Weight: 56.25 kg

DRUGS (4)
  1. CIPROFLOXACIN [Suspect]
     Active Substance: CIPROFLOXACIN
     Indication: Urinary tract infection
     Dosage: FREQUENCY : TWICE A DAY;
     Route: 048
     Dates: start: 20251129, end: 20251203
  2. OMEPRAZOLE [Concomitant]
     Active Substance: OMEPRAZOLE
  3. omega fish oil capsules [Concomitant]
  4. VITAMINS [Concomitant]
     Active Substance: VITAMINS

REACTIONS (4)
  - Pain in extremity [None]
  - Tendon pain [None]
  - Immobile [None]
  - Tendon injury [None]

NARRATIVE: CASE EVENT DATE: 20251202
